FAERS Safety Report 24443110 (Version 4)
Quarter: 2024Q4

REPORT INFORMATION
  Report Type: Report from Study
  Country: US (occurrence: US)
  Receive Date: 20241016
  Receipt Date: 20241119
  Transmission Date: 20250115
  Serious: No
  Sender: AMGEN
  Company Number: US-AMGEN-USASL2024200969

PATIENT
  Age: 47 Year
  Sex: Male

DRUGS (1)
  1. NEULASTA [Suspect]
     Active Substance: PEGFILGRASTIM
     Indication: Neoplasm malignant
     Dosage: UNK
     Route: 065
     Dates: start: 2024

REACTIONS (5)
  - White blood cell count abnormal [Unknown]
  - Device adhesion issue [Unknown]
  - Device use error [Unknown]
  - Device placement issue [Unknown]
  - Drug dose omission by device [Unknown]

NARRATIVE: CASE EVENT DATE: 20241003
